FAERS Safety Report 7638601-X (Version None)
Quarter: 2011Q3

REPORT INFORMATION
  Report Type: 
  Country: None (occurrence: None)
  Receive Date: 20110720
  Receipt Date: 20110713
  Transmission Date: 20111222
  Serious: Yes (Hospitalization)
  Sender: FDA-Public Use
  Company Number: 2011SP033082

PATIENT
  Age: 79 Year
  Sex: Male
  Weight: 54 kg

DRUGS (18)
  1. BEVACIZUMAB (BEVACIZUMAB) [Suspect]
     Indication: GLIOBLASTOMA
     Dosage: 10 MG/KG
     Dates: start: 20110611, end: 20110611
  2. BACTRIM DS [Concomitant]
  3. PAROXETINE HCL [Concomitant]
  4. ASPIRIN [Concomitant]
  5. LEDERFOLINE [Concomitant]
  6. RAMIPRIL [Concomitant]
  7. ACETAMINOPHEN [Concomitant]
  8. CALCIPARINE [Concomitant]
  9. CALCIDOSE VITAMINE D [Concomitant]
  10. DILTIAZEM HCL [Concomitant]
  11. SERETIDE DISKUS [Concomitant]
  12. SPIRIVA [Concomitant]
  13. OMEPRAZOLE [Concomitant]
  14. POTASSIUM CHLORIDE [Concomitant]
  15. KEPPRA [Concomitant]
  16. PRAVASTATIN [Concomitant]
  17. TEMOZOLOMIDE [Suspect]
     Indication: GLIOBLASTOMA
     Dosage: 130 MG/M2;PO
     Route: 048
     Dates: start: 20110611, end: 20110615
  18. TRANSIPEG [Concomitant]

REACTIONS (2)
  - SUPERINFECTION [None]
  - BRONCHITIS [None]
